FAERS Safety Report 12478457 (Version 2)
Quarter: 2016Q3

REPORT INFORMATION
  Report Type: Spontaneous
  Country: US (occurrence: US)
  Receive Date: 20160618
  Receipt Date: 20160708
  Transmission Date: 20161109
  Serious: Yes (Other)
  Sender: FDA-Public Use
  Company Number: US-AUROBINDO-AUR-APL-2016-07665

PATIENT
  Age: 33 Year
  Sex: Female

DRUGS (1)
  1. DEXAMETHASONE. [Suspect]
     Active Substance: DEXAMETHASONE
     Indication: HODGKIN^S DISEASE
     Route: 065

REACTIONS (5)
  - Papule [Recovered/Resolved]
  - Botryomycosis [Recovered/Resolved]
  - Excoriation [Recovered/Resolved]
  - Ulcer [Recovered/Resolved]
  - Pruritus [Recovered/Resolved]
